FAERS Safety Report 4359748-X (Version None)
Quarter: 2004Q2

REPORT INFORMATION
  Report Type: 
  Country: None (occurrence: None)
  Receive Date: 20040512
  Receipt Date: 20040423
  Transmission Date: 20050107
  Serious: Yes (Life-Threatening)
  Sender: FDA-Public Use
  Company Number: DSA_24305_2004

PATIENT
  Age: 69 Year
  Sex: Female

DRUGS (6)
  1. ATIVAN [Suspect]
     Indication: BIPOLAR DISORDER
     Dosage: VAR PO
     Route: 048
     Dates: start: 20040329, end: 20040405
  2. HALOPERIDOL [Suspect]
     Indication: BIPOLAR DISORDER
     Dosage: VAR PO
     Route: 048
     Dates: start: 20040403, end: 20040405
  3. THYROXINE SODIUM [Concomitant]
  4. WARFARIN SODIUM [Concomitant]
  5. TINZAPARIN SODIUM [Concomitant]
  6. ACETAMINOPHEN [Concomitant]

REACTIONS (10)
  - BALANCE DISORDER [None]
  - BLOOD PRESSURE SYSTOLIC INCREASED [None]
  - DEPRESSED LEVEL OF CONSCIOUSNESS [None]
  - HYPERHIDROSIS [None]
  - HYPERREFLEXIA [None]
  - HYPERTONIA [None]
  - MANIA [None]
  - MUSCLE RIGIDITY [None]
  - PUPILLARY REFLEX IMPAIRED [None]
  - SPEECH DISORDER [None]
